FAERS Safety Report 5823533-X (Version None)
Quarter: 2008Q3

REPORT INFORMATION
  Report Type: 
  Country: None (occurrence: None)
  Receive Date: 20080725
  Receipt Date: 20080710
  Transmission Date: 20090109
  Serious: Yes (Hospitalization)
  Sender: FDA-Public Use
  Company Number: JP-GENENTECH-263194

PATIENT
  Sex: Male
  Weight: 54 kg

DRUGS (9)
  1. BEVACIZUMAB [Suspect]
     Indication: COLON CANCER
     Dosage: 260 MG, Q2D
     Route: 041
     Dates: start: 20080327, end: 20080626
  2. TS-1 [Suspect]
     Indication: COLON CANCER
     Dosage: 50 MG, QD
     Route: 048
     Dates: start: 20080327
  3. IRINOTECAN HCL [Suspect]
     Indication: COLON CANCER
     Dosage: 150 MG, QD
     Route: 041
     Dates: start: 20080327, end: 20080626
  4. KYTRIL [Concomitant]
     Indication: DRUG USE FOR UNKNOWN INDICATION
     Dosage: UNK
  5. DEXAMETHASONE SODIUM PHOSPHATE [Concomitant]
     Indication: DRUG USE FOR UNKNOWN INDICATION
     Dosage: UNK
     Dates: start: 20080327, end: 20080626
  6. PRIMPERAN TAB [Concomitant]
     Indication: DRUG USE FOR UNKNOWN INDICATION
     Dosage: UNK
     Dates: start: 20080605, end: 20080614
  7. CHINESE MEDICINE [Concomitant]
     Indication: DRUG USE FOR UNKNOWN INDICATION
     Dosage: UNK
     Dates: start: 20080518, end: 20080521
  8. HEAVY MAGNESIUM OXIDE [Concomitant]
     Indication: DRUG USE FOR UNKNOWN INDICATION
     Dosage: UNK
     Dates: start: 20080518, end: 20080521
  9. BIOFERMIN [Concomitant]
     Indication: DRUG USE FOR UNKNOWN INDICATION
     Dosage: UNK
     Dates: start: 20080518, end: 20080521

REACTIONS (1)
  - HERPES ZOSTER [None]
